FAERS Safety Report 19202048 (Version 1)
Quarter: 2021Q2

REPORT INFORMATION
  Report Type: Report from Study
  Country: KR (occurrence: KR)
  Receive Date: 20210430
  Receipt Date: 20210430
  Transmission Date: 20210717
  Serious: Yes (Hospitalization, Other)
  Sender: FDA-Public Use
  Company Number: KR-TAKEDA-KR202000236

PATIENT
  Age: 33 Year
  Sex: Male
  Weight: 75 kg

DRUGS (132)
  1. PEGYLATED COAGULATION FACTOR VIII [Suspect]
     Active Substance: ANTIHEMOPHILIC FACTOR, PEGYLATED (MW 20000) HUMAN SEQUENCE RECOMBINANT
     Indication: FACTOR VIII DEFICIENCY
     Dosage: 2165 INTERNATIONAL UNIT/KILOGRAM
     Route: 042
     Dates: start: 20190819
  2. PEGYLATED COAGULATION FACTOR VIII [Suspect]
     Active Substance: ANTIHEMOPHILIC FACTOR, PEGYLATED (MW 20000) HUMAN SEQUENCE RECOMBINANT
     Dosage: 2165 INTERNATIONAL UNIT/KILOGRAM, 2/WEEK
     Route: 042
     Dates: start: 20190820, end: 20191114
  3. PEGYLATED COAGULATION FACTOR VIII [Suspect]
     Active Substance: ANTIHEMOPHILIC FACTOR, PEGYLATED (MW 20000) HUMAN SEQUENCE RECOMBINANT
     Dosage: 2165 INTERNATIONAL UNIT/KILOGRAM
     Route: 042
     Dates: start: 20190924
  4. PEGYLATED COAGULATION FACTOR VIII [Suspect]
     Active Substance: ANTIHEMOPHILIC FACTOR, PEGYLATED (MW 20000) HUMAN SEQUENCE RECOMBINANT
     Dosage: 2165 INTERNATIONAL UNIT/KILOGRAM
     Route: 042
     Dates: start: 20190928
  5. PEGYLATED COAGULATION FACTOR VIII [Suspect]
     Active Substance: ANTIHEMOPHILIC FACTOR, PEGYLATED (MW 20000) HUMAN SEQUENCE RECOMBINANT
     Dosage: 2165 INTERNATIONAL UNIT/KILOGRAM
     Route: 042
     Dates: start: 20191022
  6. PEGYLATED COAGULATION FACTOR VIII [Suspect]
     Active Substance: ANTIHEMOPHILIC FACTOR, PEGYLATED (MW 20000) HUMAN SEQUENCE RECOMBINANT
     Dosage: 2165 INTERNATIONAL UNIT/KILOGRAM
     Route: 042
     Dates: start: 20191022
  7. PEGYLATED COAGULATION FACTOR VIII [Suspect]
     Active Substance: ANTIHEMOPHILIC FACTOR, PEGYLATED (MW 20000) HUMAN SEQUENCE RECOMBINANT
     Dosage: 2165 INTERNATIONAL UNIT/KILOGRAM
     Route: 042
     Dates: start: 20191023
  8. PEGYLATED COAGULATION FACTOR VIII [Suspect]
     Active Substance: ANTIHEMOPHILIC FACTOR, PEGYLATED (MW 20000) HUMAN SEQUENCE RECOMBINANT
     Dosage: 2165 INTERNATIONAL UNIT/KILOGRAM
     Route: 042
     Dates: start: 20191029
  9. PEGYLATED COAGULATION FACTOR VIII [Suspect]
     Active Substance: ANTIHEMOPHILIC FACTOR, PEGYLATED (MW 20000) HUMAN SEQUENCE RECOMBINANT
     Dosage: 2165 INTERNATIONAL UNIT/KILOGRAM
     Route: 042
     Dates: start: 20191029
  10. PEGYLATED COAGULATION FACTOR VIII [Suspect]
     Active Substance: ANTIHEMOPHILIC FACTOR, PEGYLATED (MW 20000) HUMAN SEQUENCE RECOMBINANT
     Dosage: 2165 INTERNATIONAL UNIT/KILOGRAM
     Route: 042
     Dates: start: 20191030
  11. PEGYLATED COAGULATION FACTOR VIII [Suspect]
     Active Substance: ANTIHEMOPHILIC FACTOR, PEGYLATED (MW 20000) HUMAN SEQUENCE RECOMBINANT
     Dosage: 2165 INTERNATIONAL UNIT/KILOGRAM
     Route: 042
     Dates: start: 20191114
  12. PEGYLATED COAGULATION FACTOR VIII [Suspect]
     Active Substance: ANTIHEMOPHILIC FACTOR, PEGYLATED (MW 20000) HUMAN SEQUENCE RECOMBINANT
     Dosage: 2165 INTERNATIONAL UNIT/KILOGRAM
     Route: 042
     Dates: start: 20191120
  13. PEGYLATED COAGULATION FACTOR VIII [Suspect]
     Active Substance: ANTIHEMOPHILIC FACTOR, PEGYLATED (MW 20000) HUMAN SEQUENCE RECOMBINANT
     Dosage: 2165 INTERNATIONAL UNIT/KILOGRAM, 2/WEEK
     Route: 042
     Dates: start: 20191205, end: 20191205
  14. PEGYLATED COAGULATION FACTOR VIII [Suspect]
     Active Substance: ANTIHEMOPHILIC FACTOR, PEGYLATED (MW 20000) HUMAN SEQUENCE RECOMBINANT
     Dosage: 2165 INTERNATIONAL UNIT/KILOGRAM
     Route: 042
     Dates: start: 20191226
  15. PEGYLATED COAGULATION FACTOR VIII [Suspect]
     Active Substance: ANTIHEMOPHILIC FACTOR, PEGYLATED (MW 20000) HUMAN SEQUENCE RECOMBINANT
     Dosage: 2165 INTERNATIONAL UNIT/KILOGRAM
     Route: 042
     Dates: start: 20191226
  16. PEGYLATED COAGULATION FACTOR VIII [Suspect]
     Active Substance: ANTIHEMOPHILIC FACTOR, PEGYLATED (MW 20000) HUMAN SEQUENCE RECOMBINANT
     Dosage: 2165 INTERNATIONAL UNIT/KILOGRAM
     Route: 042
     Dates: start: 20200102
  17. PEGYLATED COAGULATION FACTOR VIII [Suspect]
     Active Substance: ANTIHEMOPHILIC FACTOR, PEGYLATED (MW 20000) HUMAN SEQUENCE RECOMBINANT
     Dosage: 2165 INTERNATIONAL UNIT/KILOGRAM
     Route: 042
     Dates: start: 20200106
  18. PEGYLATED COAGULATION FACTOR VIII [Suspect]
     Active Substance: ANTIHEMOPHILIC FACTOR, PEGYLATED (MW 20000) HUMAN SEQUENCE RECOMBINANT
     Dosage: 2165 INTERNATIONAL UNIT/KILOGRAM
     Route: 042
     Dates: start: 20200118
  19. PEGYLATED COAGULATION FACTOR VIII [Suspect]
     Active Substance: ANTIHEMOPHILIC FACTOR, PEGYLATED (MW 20000) HUMAN SEQUENCE RECOMBINANT
     Dosage: 2165 INTERNATIONAL UNIT/KILOGRAM
     Route: 042
     Dates: start: 20200124
  20. PEGYLATED COAGULATION FACTOR VIII [Suspect]
     Active Substance: ANTIHEMOPHILIC FACTOR, PEGYLATED (MW 20000) HUMAN SEQUENCE RECOMBINANT
     Dosage: 2165 INTERNATIONAL UNIT/KILOGRAM
     Route: 042
     Dates: start: 20200125
  21. PEGYLATED COAGULATION FACTOR VIII [Suspect]
     Active Substance: ANTIHEMOPHILIC FACTOR, PEGYLATED (MW 20000) HUMAN SEQUENCE RECOMBINANT
     Dosage: 2165 INTERNATIONAL UNIT/KILOGRAM
     Route: 042
     Dates: start: 20200203
  22. PEGYLATED COAGULATION FACTOR VIII [Suspect]
     Active Substance: ANTIHEMOPHILIC FACTOR, PEGYLATED (MW 20000) HUMAN SEQUENCE RECOMBINANT
     Dosage: 2165 INTERNATIONAL UNIT/KILOGRAM
     Route: 042
     Dates: start: 20200209
  23. PEGYLATED COAGULATION FACTOR VIII [Suspect]
     Active Substance: ANTIHEMOPHILIC FACTOR, PEGYLATED (MW 20000) HUMAN SEQUENCE RECOMBINANT
     Dosage: 2165 INTERNATIONAL UNIT/KILOGRAM
     Route: 042
     Dates: start: 20200209
  24. ADVATE [Suspect]
     Active Substance: ANTIHEMOPHILIC FACTOR, HUMAN RECOMBINANT
     Indication: FACTOR VIII DEFICIENCY
     Dosage: UNK
     Route: 042
     Dates: start: 20191115, end: 20191204
  25. PEGYLATED COAGULATION FACTOR VIII [Suspect]
     Active Substance: ANTIHEMOPHILIC FACTOR, PEGYLATED (MW 20000) HUMAN SEQUENCE RECOMBINANT
     Dosage: 2165 INTERNATIONAL UNIT/KILOGRAM
     Route: 042
     Dates: start: 20190821
  26. PEGYLATED COAGULATION FACTOR VIII [Suspect]
     Active Substance: ANTIHEMOPHILIC FACTOR, PEGYLATED (MW 20000) HUMAN SEQUENCE RECOMBINANT
     Dosage: 2165 INTERNATIONAL UNIT/KILOGRAM
     Route: 042
     Dates: start: 20190821
  27. PEGYLATED COAGULATION FACTOR VIII [Suspect]
     Active Substance: ANTIHEMOPHILIC FACTOR, PEGYLATED (MW 20000) HUMAN SEQUENCE RECOMBINANT
     Dosage: 2165 INTERNATIONAL UNIT/KILOGRAM
     Route: 042
     Dates: start: 20190826
  28. PEGYLATED COAGULATION FACTOR VIII [Suspect]
     Active Substance: ANTIHEMOPHILIC FACTOR, PEGYLATED (MW 20000) HUMAN SEQUENCE RECOMBINANT
     Dosage: 2165 INTERNATIONAL UNIT/KILOGRAM
     Route: 042
     Dates: start: 20190831
  29. PEGYLATED COAGULATION FACTOR VIII [Suspect]
     Active Substance: ANTIHEMOPHILIC FACTOR, PEGYLATED (MW 20000) HUMAN SEQUENCE RECOMBINANT
     Dosage: 2165 INTERNATIONAL UNIT/KILOGRAM
     Route: 042
     Dates: start: 20190924
  30. PEGYLATED COAGULATION FACTOR VIII [Suspect]
     Active Substance: ANTIHEMOPHILIC FACTOR, PEGYLATED (MW 20000) HUMAN SEQUENCE RECOMBINANT
     Dosage: 2165 INTERNATIONAL UNIT/KILOGRAM
     Route: 042
     Dates: start: 20190927
  31. PEGYLATED COAGULATION FACTOR VIII [Suspect]
     Active Substance: ANTIHEMOPHILIC FACTOR, PEGYLATED (MW 20000) HUMAN SEQUENCE RECOMBINANT
     Dosage: 2165 INTERNATIONAL UNIT/KILOGRAM
     Route: 042
     Dates: start: 20191022
  32. PEGYLATED COAGULATION FACTOR VIII [Suspect]
     Active Substance: ANTIHEMOPHILIC FACTOR, PEGYLATED (MW 20000) HUMAN SEQUENCE RECOMBINANT
     Dosage: 2165 INTERNATIONAL UNIT/KILOGRAM
     Route: 042
     Dates: start: 20191107
  33. PEGYLATED COAGULATION FACTOR VIII [Suspect]
     Active Substance: ANTIHEMOPHILIC FACTOR, PEGYLATED (MW 20000) HUMAN SEQUENCE RECOMBINANT
     Dosage: 2165 INTERNATIONAL UNIT/KILOGRAM
     Route: 042
     Dates: start: 20191120
  34. PEGYLATED COAGULATION FACTOR VIII [Suspect]
     Active Substance: ANTIHEMOPHILIC FACTOR, PEGYLATED (MW 20000) HUMAN SEQUENCE RECOMBINANT
     Dosage: 2165 INTERNATIONAL UNIT/KILOGRAM
     Route: 042
     Dates: start: 20191130
  35. PEGYLATED COAGULATION FACTOR VIII [Suspect]
     Active Substance: ANTIHEMOPHILIC FACTOR, PEGYLATED (MW 20000) HUMAN SEQUENCE RECOMBINANT
     Dosage: 2165 INTERNATIONAL UNIT/KILOGRAM
     Route: 042
     Dates: start: 20191130
  36. PEGYLATED COAGULATION FACTOR VIII [Suspect]
     Active Substance: ANTIHEMOPHILIC FACTOR, PEGYLATED (MW 20000) HUMAN SEQUENCE RECOMBINANT
     Dosage: 2165 INTERNATIONAL UNIT/KILOGRAM, 2/WEEK
     Route: 042
     Dates: start: 20191205, end: 20191205
  37. PEGYLATED COAGULATION FACTOR VIII [Suspect]
     Active Substance: ANTIHEMOPHILIC FACTOR, PEGYLATED (MW 20000) HUMAN SEQUENCE RECOMBINANT
     Dosage: 2165 INTERNATIONAL UNIT/KILOGRAM
     Route: 042
     Dates: start: 20191226
  38. PEGYLATED COAGULATION FACTOR VIII [Suspect]
     Active Substance: ANTIHEMOPHILIC FACTOR, PEGYLATED (MW 20000) HUMAN SEQUENCE RECOMBINANT
     Dosage: 2165 INTERNATIONAL UNIT/KILOGRAM
     Route: 042
     Dates: start: 20200102
  39. PEGYLATED COAGULATION FACTOR VIII [Suspect]
     Active Substance: ANTIHEMOPHILIC FACTOR, PEGYLATED (MW 20000) HUMAN SEQUENCE RECOMBINANT
     Dosage: 2165 INTERNATIONAL UNIT/KILOGRAM
     Route: 042
     Dates: start: 20200110
  40. PEGYLATED COAGULATION FACTOR VIII [Suspect]
     Active Substance: ANTIHEMOPHILIC FACTOR, PEGYLATED (MW 20000) HUMAN SEQUENCE RECOMBINANT
     Dosage: 2165 INTERNATIONAL UNIT/KILOGRAM
     Route: 042
     Dates: start: 20200204
  41. PEGYLATED COAGULATION FACTOR VIII [Suspect]
     Active Substance: ANTIHEMOPHILIC FACTOR, PEGYLATED (MW 20000) HUMAN SEQUENCE RECOMBINANT
     Dosage: 2165 INTERNATIONAL UNIT/KILOGRAM
     Route: 042
     Dates: start: 20190820
  42. PEGYLATED COAGULATION FACTOR VIII [Suspect]
     Active Substance: ANTIHEMOPHILIC FACTOR, PEGYLATED (MW 20000) HUMAN SEQUENCE RECOMBINANT
     Dosage: 2165 INTERNATIONAL UNIT/KILOGRAM
     Route: 042
     Dates: start: 20190822
  43. PEGYLATED COAGULATION FACTOR VIII [Suspect]
     Active Substance: ANTIHEMOPHILIC FACTOR, PEGYLATED (MW 20000) HUMAN SEQUENCE RECOMBINANT
     Dosage: 2165 INTERNATIONAL UNIT/KILOGRAM
     Route: 042
     Dates: start: 20190831
  44. PEGYLATED COAGULATION FACTOR VIII [Suspect]
     Active Substance: ANTIHEMOPHILIC FACTOR, PEGYLATED (MW 20000) HUMAN SEQUENCE RECOMBINANT
     Dosage: 2165 INTERNATIONAL UNIT/KILOGRAM
     Route: 042
     Dates: start: 20191004
  45. PEGYLATED COAGULATION FACTOR VIII [Suspect]
     Active Substance: ANTIHEMOPHILIC FACTOR, PEGYLATED (MW 20000) HUMAN SEQUENCE RECOMBINANT
     Dosage: 2165 INTERNATIONAL UNIT/KILOGRAM
     Route: 042
     Dates: start: 20191010
  46. PEGYLATED COAGULATION FACTOR VIII [Suspect]
     Active Substance: ANTIHEMOPHILIC FACTOR, PEGYLATED (MW 20000) HUMAN SEQUENCE RECOMBINANT
     Dosage: 2165 INTERNATIONAL UNIT/KILOGRAM
     Route: 042
     Dates: start: 20191019
  47. PEGYLATED COAGULATION FACTOR VIII [Suspect]
     Active Substance: ANTIHEMOPHILIC FACTOR, PEGYLATED (MW 20000) HUMAN SEQUENCE RECOMBINANT
     Dosage: 2165 INTERNATIONAL UNIT/KILOGRAM
     Route: 042
     Dates: start: 20191028
  48. PEGYLATED COAGULATION FACTOR VIII [Suspect]
     Active Substance: ANTIHEMOPHILIC FACTOR, PEGYLATED (MW 20000) HUMAN SEQUENCE RECOMBINANT
     Dosage: 2165 INTERNATIONAL UNIT/KILOGRAM
     Route: 042
     Dates: start: 20191029
  49. PEGYLATED COAGULATION FACTOR VIII [Suspect]
     Active Substance: ANTIHEMOPHILIC FACTOR, PEGYLATED (MW 20000) HUMAN SEQUENCE RECOMBINANT
     Dosage: 2165 INTERNATIONAL UNIT/KILOGRAM
     Route: 042
     Dates: start: 20191030
  50. PEGYLATED COAGULATION FACTOR VIII [Suspect]
     Active Substance: ANTIHEMOPHILIC FACTOR, PEGYLATED (MW 20000) HUMAN SEQUENCE RECOMBINANT
     Dosage: 2165 INTERNATIONAL UNIT/KILOGRAM
     Route: 042
     Dates: start: 20191108
  51. PEGYLATED COAGULATION FACTOR VIII [Suspect]
     Active Substance: ANTIHEMOPHILIC FACTOR, PEGYLATED (MW 20000) HUMAN SEQUENCE RECOMBINANT
     Dosage: 2165 INTERNATIONAL UNIT/KILOGRAM
     Route: 042
     Dates: start: 20191114
  52. PEGYLATED COAGULATION FACTOR VIII [Suspect]
     Active Substance: ANTIHEMOPHILIC FACTOR, PEGYLATED (MW 20000) HUMAN SEQUENCE RECOMBINANT
     Dosage: 2165 INTERNATIONAL UNIT/KILOGRAM, 2/WEEK
     Route: 042
     Dates: start: 20191205, end: 20191205
  53. PEGYLATED COAGULATION FACTOR VIII [Suspect]
     Active Substance: ANTIHEMOPHILIC FACTOR, PEGYLATED (MW 20000) HUMAN SEQUENCE RECOMBINANT
     Dosage: 2165 INTERNATIONAL UNIT/KILOGRAM
     Route: 042
     Dates: start: 20191220
  54. PEGYLATED COAGULATION FACTOR VIII [Suspect]
     Active Substance: ANTIHEMOPHILIC FACTOR, PEGYLATED (MW 20000) HUMAN SEQUENCE RECOMBINANT
     Dosage: 2165 INTERNATIONAL UNIT/KILOGRAM
     Route: 042
     Dates: start: 20200107
  55. PEGYLATED COAGULATION FACTOR VIII [Suspect]
     Active Substance: ANTIHEMOPHILIC FACTOR, PEGYLATED (MW 20000) HUMAN SEQUENCE RECOMBINANT
     Dosage: 2165 INTERNATIONAL UNIT/KILOGRAM
     Route: 042
     Dates: start: 20200125
  56. PEGYLATED COAGULATION FACTOR VIII [Suspect]
     Active Substance: ANTIHEMOPHILIC FACTOR, PEGYLATED (MW 20000) HUMAN SEQUENCE RECOMBINANT
     Dosage: 2165 INTERNATIONAL UNIT/KILOGRAM
     Route: 042
     Dates: start: 20200208
  57. PEGYLATED COAGULATION FACTOR VIII [Suspect]
     Active Substance: ANTIHEMOPHILIC FACTOR, PEGYLATED (MW 20000) HUMAN SEQUENCE RECOMBINANT
     Dosage: 2165 INTERNATIONAL UNIT/KILOGRAM
     Route: 042
     Dates: start: 20200215
  58. ADVATE [Suspect]
     Active Substance: ANTIHEMOPHILIC FACTOR, HUMAN RECOMBINANT
     Indication: FACTOR VIII DEFICIENCY
     Dosage: UNK
     Route: 042
     Dates: start: 20191115, end: 20191204
  59. ADVATE [Suspect]
     Active Substance: ANTIHEMOPHILIC FACTOR, HUMAN RECOMBINANT
     Indication: FACTOR VIII DEFICIENCY
     Dosage: UNK
     Route: 042
     Dates: start: 20191115, end: 20191204
  60. PEGYLATED COAGULATION FACTOR VIII [Suspect]
     Active Substance: ANTIHEMOPHILIC FACTOR, PEGYLATED (MW 20000) HUMAN SEQUENCE RECOMBINANT
     Dosage: 2165 INTERNATIONAL UNIT/KILOGRAM, 2/WEEK
     Route: 042
     Dates: start: 20190820, end: 20191114
  61. PEGYLATED COAGULATION FACTOR VIII [Suspect]
     Active Substance: ANTIHEMOPHILIC FACTOR, PEGYLATED (MW 20000) HUMAN SEQUENCE RECOMBINANT
     Dosage: 2165 INTERNATIONAL UNIT/KILOGRAM
     Route: 042
     Dates: start: 20190827
  62. PEGYLATED COAGULATION FACTOR VIII [Suspect]
     Active Substance: ANTIHEMOPHILIC FACTOR, PEGYLATED (MW 20000) HUMAN SEQUENCE RECOMBINANT
     Dosage: 2165 INTERNATIONAL UNIT/KILOGRAM
     Route: 042
     Dates: start: 20190827
  63. PEGYLATED COAGULATION FACTOR VIII [Suspect]
     Active Substance: ANTIHEMOPHILIC FACTOR, PEGYLATED (MW 20000) HUMAN SEQUENCE RECOMBINANT
     Dosage: 2165 INTERNATIONAL UNIT/KILOGRAM
     Route: 042
     Dates: start: 20190830
  64. PEGYLATED COAGULATION FACTOR VIII [Suspect]
     Active Substance: ANTIHEMOPHILIC FACTOR, PEGYLATED (MW 20000) HUMAN SEQUENCE RECOMBINANT
     Dosage: 2165 INTERNATIONAL UNIT/KILOGRAM
     Route: 042
     Dates: start: 20190923
  65. PEGYLATED COAGULATION FACTOR VIII [Suspect]
     Active Substance: ANTIHEMOPHILIC FACTOR, PEGYLATED (MW 20000) HUMAN SEQUENCE RECOMBINANT
     Dosage: 2165 INTERNATIONAL UNIT/KILOGRAM
     Route: 042
     Dates: start: 20190923
  66. PEGYLATED COAGULATION FACTOR VIII [Suspect]
     Active Substance: ANTIHEMOPHILIC FACTOR, PEGYLATED (MW 20000) HUMAN SEQUENCE RECOMBINANT
     Dosage: 2165 INTERNATIONAL UNIT/KILOGRAM
     Route: 042
     Dates: start: 20190928
  67. PEGYLATED COAGULATION FACTOR VIII [Suspect]
     Active Substance: ANTIHEMOPHILIC FACTOR, PEGYLATED (MW 20000) HUMAN SEQUENCE RECOMBINANT
     Dosage: 2165 INTERNATIONAL UNIT/KILOGRAM
     Route: 042
     Dates: start: 20191023
  68. PEGYLATED COAGULATION FACTOR VIII [Suspect]
     Active Substance: ANTIHEMOPHILIC FACTOR, PEGYLATED (MW 20000) HUMAN SEQUENCE RECOMBINANT
     Dosage: 2165 INTERNATIONAL UNIT/KILOGRAM
     Route: 042
     Dates: start: 20191108
  69. PEGYLATED COAGULATION FACTOR VIII [Suspect]
     Active Substance: ANTIHEMOPHILIC FACTOR, PEGYLATED (MW 20000) HUMAN SEQUENCE RECOMBINANT
     Dosage: 2165 INTERNATIONAL UNIT/KILOGRAM
     Route: 042
     Dates: start: 20200110
  70. PEGYLATED COAGULATION FACTOR VIII [Suspect]
     Active Substance: ANTIHEMOPHILIC FACTOR, PEGYLATED (MW 20000) HUMAN SEQUENCE RECOMBINANT
     Dosage: 2165 INTERNATIONAL UNIT/KILOGRAM
     Route: 042
     Dates: start: 20200124
  71. PEGYLATED COAGULATION FACTOR VIII [Suspect]
     Active Substance: ANTIHEMOPHILIC FACTOR, PEGYLATED (MW 20000) HUMAN SEQUENCE RECOMBINANT
     Dosage: 2165 INTERNATIONAL UNIT/KILOGRAM
     Route: 042
     Dates: start: 20190820
  72. PEGYLATED COAGULATION FACTOR VIII [Suspect]
     Active Substance: ANTIHEMOPHILIC FACTOR, PEGYLATED (MW 20000) HUMAN SEQUENCE RECOMBINANT
     Dosage: 2165 INTERNATIONAL UNIT/KILOGRAM
     Route: 042
     Dates: start: 20190822
  73. PEGYLATED COAGULATION FACTOR VIII [Suspect]
     Active Substance: ANTIHEMOPHILIC FACTOR, PEGYLATED (MW 20000) HUMAN SEQUENCE RECOMBINANT
     Dosage: 2165 INTERNATIONAL UNIT/KILOGRAM
     Route: 042
     Dates: start: 20190826
  74. PEGYLATED COAGULATION FACTOR VIII [Suspect]
     Active Substance: ANTIHEMOPHILIC FACTOR, PEGYLATED (MW 20000) HUMAN SEQUENCE RECOMBINANT
     Dosage: 2165 INTERNATIONAL UNIT/KILOGRAM
     Route: 042
     Dates: start: 20190830
  75. PEGYLATED COAGULATION FACTOR VIII [Suspect]
     Active Substance: ANTIHEMOPHILIC FACTOR, PEGYLATED (MW 20000) HUMAN SEQUENCE RECOMBINANT
     Dosage: 2165 INTERNATIONAL UNIT/KILOGRAM
     Route: 042
     Dates: start: 20190831
  76. PEGYLATED COAGULATION FACTOR VIII [Suspect]
     Active Substance: ANTIHEMOPHILIC FACTOR, PEGYLATED (MW 20000) HUMAN SEQUENCE RECOMBINANT
     Dosage: 2165 INTERNATIONAL UNIT/KILOGRAM
     Route: 042
     Dates: start: 20191004
  77. PEGYLATED COAGULATION FACTOR VIII [Suspect]
     Active Substance: ANTIHEMOPHILIC FACTOR, PEGYLATED (MW 20000) HUMAN SEQUENCE RECOMBINANT
     Dosage: 2165 INTERNATIONAL UNIT/KILOGRAM
     Route: 042
     Dates: start: 20191010
  78. PEGYLATED COAGULATION FACTOR VIII [Suspect]
     Active Substance: ANTIHEMOPHILIC FACTOR, PEGYLATED (MW 20000) HUMAN SEQUENCE RECOMBINANT
     Dosage: 2165 INTERNATIONAL UNIT/KILOGRAM
     Route: 042
     Dates: start: 20191019
  79. PEGYLATED COAGULATION FACTOR VIII [Suspect]
     Active Substance: ANTIHEMOPHILIC FACTOR, PEGYLATED (MW 20000) HUMAN SEQUENCE RECOMBINANT
     Dosage: 2165 INTERNATIONAL UNIT/KILOGRAM
     Route: 042
     Dates: start: 20191023
  80. PEGYLATED COAGULATION FACTOR VIII [Suspect]
     Active Substance: ANTIHEMOPHILIC FACTOR, PEGYLATED (MW 20000) HUMAN SEQUENCE RECOMBINANT
     Dosage: 2165 INTERNATIONAL UNIT/KILOGRAM
     Route: 042
     Dates: start: 20191029
  81. PEGYLATED COAGULATION FACTOR VIII [Suspect]
     Active Substance: ANTIHEMOPHILIC FACTOR, PEGYLATED (MW 20000) HUMAN SEQUENCE RECOMBINANT
     Dosage: 2165 INTERNATIONAL UNIT/KILOGRAM
     Route: 042
     Dates: start: 20191028
  82. PEGYLATED COAGULATION FACTOR VIII [Suspect]
     Active Substance: ANTIHEMOPHILIC FACTOR, PEGYLATED (MW 20000) HUMAN SEQUENCE RECOMBINANT
     Dosage: 2165 INTERNATIONAL UNIT/KILOGRAM
     Route: 042
     Dates: start: 20191030
  83. PEGYLATED COAGULATION FACTOR VIII [Suspect]
     Active Substance: ANTIHEMOPHILIC FACTOR, PEGYLATED (MW 20000) HUMAN SEQUENCE RECOMBINANT
     Dosage: 2165 INTERNATIONAL UNIT/KILOGRAM
     Route: 042
     Dates: start: 20191107
  84. PEGYLATED COAGULATION FACTOR VIII [Suspect]
     Active Substance: ANTIHEMOPHILIC FACTOR, PEGYLATED (MW 20000) HUMAN SEQUENCE RECOMBINANT
     Dosage: 2165 INTERNATIONAL UNIT/KILOGRAM
     Route: 042
     Dates: start: 20191220
  85. PEGYLATED COAGULATION FACTOR VIII [Suspect]
     Active Substance: ANTIHEMOPHILIC FACTOR, PEGYLATED (MW 20000) HUMAN SEQUENCE RECOMBINANT
     Dosage: 2165 INTERNATIONAL UNIT/KILOGRAM
     Route: 042
     Dates: start: 20200101
  86. PEGYLATED COAGULATION FACTOR VIII [Suspect]
     Active Substance: ANTIHEMOPHILIC FACTOR, PEGYLATED (MW 20000) HUMAN SEQUENCE RECOMBINANT
     Dosage: 2165 INTERNATIONAL UNIT/KILOGRAM
     Route: 042
     Dates: start: 20200101
  87. PEGYLATED COAGULATION FACTOR VIII [Suspect]
     Active Substance: ANTIHEMOPHILIC FACTOR, PEGYLATED (MW 20000) HUMAN SEQUENCE RECOMBINANT
     Dosage: 2165 INTERNATIONAL UNIT/KILOGRAM
     Route: 042
     Dates: start: 20200106
  88. PEGYLATED COAGULATION FACTOR VIII [Suspect]
     Active Substance: ANTIHEMOPHILIC FACTOR, PEGYLATED (MW 20000) HUMAN SEQUENCE RECOMBINANT
     Dosage: 2165 INTERNATIONAL UNIT/KILOGRAM
     Route: 042
     Dates: start: 20200106
  89. PEGYLATED COAGULATION FACTOR VIII [Suspect]
     Active Substance: ANTIHEMOPHILIC FACTOR, PEGYLATED (MW 20000) HUMAN SEQUENCE RECOMBINANT
     Dosage: 2165 INTERNATIONAL UNIT/KILOGRAM
     Route: 042
     Dates: start: 20200107
  90. PEGYLATED COAGULATION FACTOR VIII [Suspect]
     Active Substance: ANTIHEMOPHILIC FACTOR, PEGYLATED (MW 20000) HUMAN SEQUENCE RECOMBINANT
     Dosage: 2165 INTERNATIONAL UNIT/KILOGRAM
     Route: 042
     Dates: start: 20200204
  91. PEGYLATED COAGULATION FACTOR VIII [Suspect]
     Active Substance: ANTIHEMOPHILIC FACTOR, PEGYLATED (MW 20000) HUMAN SEQUENCE RECOMBINANT
     Dosage: 2165 INTERNATIONAL UNIT/KILOGRAM
     Route: 042
     Dates: start: 20200209
  92. PEGYLATED COAGULATION FACTOR VIII [Suspect]
     Active Substance: ANTIHEMOPHILIC FACTOR, PEGYLATED (MW 20000) HUMAN SEQUENCE RECOMBINANT
     Indication: FACTOR VIII DEFICIENCY
     Dosage: 2165 INTERNATIONAL UNIT/KILOGRAM
     Route: 042
     Dates: start: 20190819
  93. PEGYLATED COAGULATION FACTOR VIII [Suspect]
     Active Substance: ANTIHEMOPHILIC FACTOR, PEGYLATED (MW 20000) HUMAN SEQUENCE RECOMBINANT
     Dosage: 2165 INTERNATIONAL UNIT/KILOGRAM
     Route: 042
     Dates: start: 20190821
  94. PEGYLATED COAGULATION FACTOR VIII [Suspect]
     Active Substance: ANTIHEMOPHILIC FACTOR, PEGYLATED (MW 20000) HUMAN SEQUENCE RECOMBINANT
     Dosage: 2165 INTERNATIONAL UNIT/KILOGRAM
     Route: 042
     Dates: start: 20190830
  95. PEGYLATED COAGULATION FACTOR VIII [Suspect]
     Active Substance: ANTIHEMOPHILIC FACTOR, PEGYLATED (MW 20000) HUMAN SEQUENCE RECOMBINANT
     Dosage: 2165 INTERNATIONAL UNIT/KILOGRAM
     Route: 042
     Dates: start: 20190923
  96. PEGYLATED COAGULATION FACTOR VIII [Suspect]
     Active Substance: ANTIHEMOPHILIC FACTOR, PEGYLATED (MW 20000) HUMAN SEQUENCE RECOMBINANT
     Dosage: 2165 INTERNATIONAL UNIT/KILOGRAM
     Route: 042
     Dates: start: 20190928
  97. PEGYLATED COAGULATION FACTOR VIII [Suspect]
     Active Substance: ANTIHEMOPHILIC FACTOR, PEGYLATED (MW 20000) HUMAN SEQUENCE RECOMBINANT
     Dosage: 2165 INTERNATIONAL UNIT/KILOGRAM
     Route: 042
     Dates: start: 20191010
  98. PEGYLATED COAGULATION FACTOR VIII [Suspect]
     Active Substance: ANTIHEMOPHILIC FACTOR, PEGYLATED (MW 20000) HUMAN SEQUENCE RECOMBINANT
     Dosage: 2165 INTERNATIONAL UNIT/KILOGRAM
     Route: 042
     Dates: start: 20191107
  99. PEGYLATED COAGULATION FACTOR VIII [Suspect]
     Active Substance: ANTIHEMOPHILIC FACTOR, PEGYLATED (MW 20000) HUMAN SEQUENCE RECOMBINANT
     Dosage: 2165 INTERNATIONAL UNIT/KILOGRAM
     Route: 042
     Dates: start: 20191220
  100. PEGYLATED COAGULATION FACTOR VIII [Suspect]
     Active Substance: ANTIHEMOPHILIC FACTOR, PEGYLATED (MW 20000) HUMAN SEQUENCE RECOMBINANT
     Dosage: 2165 INTERNATIONAL UNIT/KILOGRAM
     Route: 042
     Dates: start: 20200203
  101. PEGYLATED COAGULATION FACTOR VIII [Suspect]
     Active Substance: ANTIHEMOPHILIC FACTOR, PEGYLATED (MW 20000) HUMAN SEQUENCE RECOMBINANT
     Dosage: 2165 INTERNATIONAL UNIT/KILOGRAM
     Route: 042
     Dates: start: 20200208
  102. PEGYLATED COAGULATION FACTOR VIII [Suspect]
     Active Substance: ANTIHEMOPHILIC FACTOR, PEGYLATED (MW 20000) HUMAN SEQUENCE RECOMBINANT
     Dosage: 2165 INTERNATIONAL UNIT/KILOGRAM
     Route: 042
     Dates: start: 20200208
  103. PEGYLATED COAGULATION FACTOR VIII [Suspect]
     Active Substance: ANTIHEMOPHILIC FACTOR, PEGYLATED (MW 20000) HUMAN SEQUENCE RECOMBINANT
     Indication: FACTOR VIII DEFICIENCY
     Dosage: 2165 INTERNATIONAL UNIT/KILOGRAM
     Route: 042
     Dates: start: 20190819
  104. PEGYLATED COAGULATION FACTOR VIII [Suspect]
     Active Substance: ANTIHEMOPHILIC FACTOR, PEGYLATED (MW 20000) HUMAN SEQUENCE RECOMBINANT
     Dosage: 2165 INTERNATIONAL UNIT/KILOGRAM, 2/WEEK
     Route: 042
     Dates: start: 20190820, end: 20191114
  105. PEGYLATED COAGULATION FACTOR VIII [Suspect]
     Active Substance: ANTIHEMOPHILIC FACTOR, PEGYLATED (MW 20000) HUMAN SEQUENCE RECOMBINANT
     Dosage: 2165 INTERNATIONAL UNIT/KILOGRAM
     Route: 042
     Dates: start: 20190822
  106. PEGYLATED COAGULATION FACTOR VIII [Suspect]
     Active Substance: ANTIHEMOPHILIC FACTOR, PEGYLATED (MW 20000) HUMAN SEQUENCE RECOMBINANT
     Dosage: 2165 INTERNATIONAL UNIT/KILOGRAM
     Route: 042
     Dates: start: 20190826
  107. PEGYLATED COAGULATION FACTOR VIII [Suspect]
     Active Substance: ANTIHEMOPHILIC FACTOR, PEGYLATED (MW 20000) HUMAN SEQUENCE RECOMBINANT
     Dosage: 2165 INTERNATIONAL UNIT/KILOGRAM
     Route: 042
     Dates: start: 20190827
  108. PEGYLATED COAGULATION FACTOR VIII [Suspect]
     Active Substance: ANTIHEMOPHILIC FACTOR, PEGYLATED (MW 20000) HUMAN SEQUENCE RECOMBINANT
     Dosage: 2165 INTERNATIONAL UNIT/KILOGRAM
     Route: 042
     Dates: start: 20190924
  109. PEGYLATED COAGULATION FACTOR VIII [Suspect]
     Active Substance: ANTIHEMOPHILIC FACTOR, PEGYLATED (MW 20000) HUMAN SEQUENCE RECOMBINANT
     Dosage: 2165 INTERNATIONAL UNIT/KILOGRAM
     Route: 042
     Dates: start: 20190927
  110. PEGYLATED COAGULATION FACTOR VIII [Suspect]
     Active Substance: ANTIHEMOPHILIC FACTOR, PEGYLATED (MW 20000) HUMAN SEQUENCE RECOMBINANT
     Dosage: 2165 INTERNATIONAL UNIT/KILOGRAM
     Route: 042
     Dates: start: 20191004
  111. PEGYLATED COAGULATION FACTOR VIII [Suspect]
     Active Substance: ANTIHEMOPHILIC FACTOR, PEGYLATED (MW 20000) HUMAN SEQUENCE RECOMBINANT
     Dosage: 2165 INTERNATIONAL UNIT/KILOGRAM
     Route: 042
     Dates: start: 20191028
  112. PEGYLATED COAGULATION FACTOR VIII [Suspect]
     Active Substance: ANTIHEMOPHILIC FACTOR, PEGYLATED (MW 20000) HUMAN SEQUENCE RECOMBINANT
     Dosage: 2165 INTERNATIONAL UNIT/KILOGRAM
     Route: 042
     Dates: start: 20191114
  113. PEGYLATED COAGULATION FACTOR VIII [Suspect]
     Active Substance: ANTIHEMOPHILIC FACTOR, PEGYLATED (MW 20000) HUMAN SEQUENCE RECOMBINANT
     Dosage: 2165 INTERNATIONAL UNIT/KILOGRAM
     Route: 042
     Dates: start: 20191120
  114. PEGYLATED COAGULATION FACTOR VIII [Suspect]
     Active Substance: ANTIHEMOPHILIC FACTOR, PEGYLATED (MW 20000) HUMAN SEQUENCE RECOMBINANT
     Dosage: 2165 INTERNATIONAL UNIT/KILOGRAM
     Route: 042
     Dates: start: 20191130
  115. PEGYLATED COAGULATION FACTOR VIII [Suspect]
     Active Substance: ANTIHEMOPHILIC FACTOR, PEGYLATED (MW 20000) HUMAN SEQUENCE RECOMBINANT
     Dosage: 2165 INTERNATIONAL UNIT/KILOGRAM
     Route: 042
     Dates: start: 20200101
  116. PEGYLATED COAGULATION FACTOR VIII [Suspect]
     Active Substance: ANTIHEMOPHILIC FACTOR, PEGYLATED (MW 20000) HUMAN SEQUENCE RECOMBINANT
     Dosage: 2165 INTERNATIONAL UNIT/KILOGRAM
     Route: 042
     Dates: start: 20200107
  117. PEGYLATED COAGULATION FACTOR VIII [Suspect]
     Active Substance: ANTIHEMOPHILIC FACTOR, PEGYLATED (MW 20000) HUMAN SEQUENCE RECOMBINANT
     Dosage: 2165 INTERNATIONAL UNIT/KILOGRAM
     Route: 042
     Dates: start: 20200118
  118. PEGYLATED COAGULATION FACTOR VIII [Suspect]
     Active Substance: ANTIHEMOPHILIC FACTOR, PEGYLATED (MW 20000) HUMAN SEQUENCE RECOMBINANT
     Dosage: 2165 INTERNATIONAL UNIT/KILOGRAM
     Route: 042
     Dates: start: 20200118
  119. PEGYLATED COAGULATION FACTOR VIII [Suspect]
     Active Substance: ANTIHEMOPHILIC FACTOR, PEGYLATED (MW 20000) HUMAN SEQUENCE RECOMBINANT
     Dosage: 2165 INTERNATIONAL UNIT/KILOGRAM
     Route: 042
     Dates: start: 20200124
  120. PEGYLATED COAGULATION FACTOR VIII [Suspect]
     Active Substance: ANTIHEMOPHILIC FACTOR, PEGYLATED (MW 20000) HUMAN SEQUENCE RECOMBINANT
     Dosage: 2165 INTERNATIONAL UNIT/KILOGRAM
     Route: 042
     Dates: start: 20200125
  121. PEGYLATED COAGULATION FACTOR VIII [Suspect]
     Active Substance: ANTIHEMOPHILIC FACTOR, PEGYLATED (MW 20000) HUMAN SEQUENCE RECOMBINANT
     Dosage: 2165 INTERNATIONAL UNIT/KILOGRAM
     Route: 042
     Dates: start: 20200215
  122. PEGYLATED COAGULATION FACTOR VIII [Suspect]
     Active Substance: ANTIHEMOPHILIC FACTOR, PEGYLATED (MW 20000) HUMAN SEQUENCE RECOMBINANT
     Dosage: 2165 INTERNATIONAL UNIT/KILOGRAM
     Route: 042
     Dates: start: 20190820
  123. PEGYLATED COAGULATION FACTOR VIII [Suspect]
     Active Substance: ANTIHEMOPHILIC FACTOR, PEGYLATED (MW 20000) HUMAN SEQUENCE RECOMBINANT
     Dosage: 2165 INTERNATIONAL UNIT/KILOGRAM
     Route: 042
     Dates: start: 20190927
  124. PEGYLATED COAGULATION FACTOR VIII [Suspect]
     Active Substance: ANTIHEMOPHILIC FACTOR, PEGYLATED (MW 20000) HUMAN SEQUENCE RECOMBINANT
     Dosage: 2165 INTERNATIONAL UNIT/KILOGRAM
     Route: 042
     Dates: start: 20191019
  125. PEGYLATED COAGULATION FACTOR VIII [Suspect]
     Active Substance: ANTIHEMOPHILIC FACTOR, PEGYLATED (MW 20000) HUMAN SEQUENCE RECOMBINANT
     Dosage: 2165 INTERNATIONAL UNIT/KILOGRAM
     Route: 042
     Dates: start: 20191029
  126. PEGYLATED COAGULATION FACTOR VIII [Suspect]
     Active Substance: ANTIHEMOPHILIC FACTOR, PEGYLATED (MW 20000) HUMAN SEQUENCE RECOMBINANT
     Dosage: 2165 INTERNATIONAL UNIT/KILOGRAM
     Route: 042
     Dates: start: 20191029
  127. PEGYLATED COAGULATION FACTOR VIII [Suspect]
     Active Substance: ANTIHEMOPHILIC FACTOR, PEGYLATED (MW 20000) HUMAN SEQUENCE RECOMBINANT
     Dosage: 2165 INTERNATIONAL UNIT/KILOGRAM
     Route: 042
     Dates: start: 20191108
  128. PEGYLATED COAGULATION FACTOR VIII [Suspect]
     Active Substance: ANTIHEMOPHILIC FACTOR, PEGYLATED (MW 20000) HUMAN SEQUENCE RECOMBINANT
     Dosage: 2165 INTERNATIONAL UNIT/KILOGRAM
     Route: 042
     Dates: start: 20200102
  129. PEGYLATED COAGULATION FACTOR VIII [Suspect]
     Active Substance: ANTIHEMOPHILIC FACTOR, PEGYLATED (MW 20000) HUMAN SEQUENCE RECOMBINANT
     Dosage: 2165 INTERNATIONAL UNIT/KILOGRAM
     Route: 042
     Dates: start: 20200110
  130. PEGYLATED COAGULATION FACTOR VIII [Suspect]
     Active Substance: ANTIHEMOPHILIC FACTOR, PEGYLATED (MW 20000) HUMAN SEQUENCE RECOMBINANT
     Dosage: 2165 INTERNATIONAL UNIT/KILOGRAM
     Route: 042
     Dates: start: 20200203
  131. PEGYLATED COAGULATION FACTOR VIII [Suspect]
     Active Substance: ANTIHEMOPHILIC FACTOR, PEGYLATED (MW 20000) HUMAN SEQUENCE RECOMBINANT
     Dosage: 2165 INTERNATIONAL UNIT/KILOGRAM
     Route: 042
     Dates: start: 20200204
  132. PEGYLATED COAGULATION FACTOR VIII [Suspect]
     Active Substance: ANTIHEMOPHILIC FACTOR, PEGYLATED (MW 20000) HUMAN SEQUENCE RECOMBINANT
     Dosage: 2165 INTERNATIONAL UNIT/KILOGRAM
     Route: 042
     Dates: start: 20200215

REACTIONS (1)
  - Appendicitis [Recovered/Resolved]

NARRATIVE: CASE EVENT DATE: 20191115
